FAERS Safety Report 22608146 (Version 2)
Quarter: 2023Q2

REPORT INFORMATION
  Report Type: Report from Study
  Country: PT (occurrence: PT)
  Receive Date: 20230616
  Receipt Date: 20230621
  Transmission Date: 20230722
  Serious: Yes (Death, Hospitalization)
  Sender: FDA-Public Use
  Company Number: PT-ABBVIE-22K-130-4536892-00

PATIENT
  Age: 78 Year
  Sex: Male

DRUGS (16)
  1. CARBIDOPA\LEVODOPA [Suspect]
     Active Substance: CARBIDOPA\LEVODOPA
     Indication: Parkinson^s disease
     Dosage: 20 MG/5 MG?FREQUENCY TEXT: MORN:14CC;MAINT:2.1CC/H;EXTRA:1CC
     Route: 050
     Dates: start: 20220426, end: 2022
  2. CARBIDOPA\LEVODOPA [Suspect]
     Active Substance: CARBIDOPA\LEVODOPA
     Dosage: 20 MG/5 MG, MORN:15CC,MAINT:5.5CC/H,EXTRA:4CC
     Route: 050
     Dates: start: 2022, end: 20221011
  3. CARBIDOPA\LEVODOPA [Suspect]
     Active Substance: CARBIDOPA\LEVODOPA
     Dosage: 20 MG/5 MG?FREQUENCY TEXT: MORN:15CC;MAINT:6CC/H;EXTRA:4CC
     Route: 050
     Dates: start: 20221011, end: 202305
  4. CARBIDOPA\LEVODOPA [Suspect]
     Active Substance: CARBIDOPA\LEVODOPA
     Dosage: 20 MG/5 MG
     Route: 050
     Dates: start: 202305, end: 202305
  5. CARBIDOPA\LEVODOPA [Suspect]
     Active Substance: CARBIDOPA\LEVODOPA
     Route: 050
     Dates: start: 2023
  6. ALPRAZOLAMS [Concomitant]
     Indication: Product used for unknown indication
     Dosage: FORM STRENGTH: 0.5 MILLIGRAM, FREQUENCY TEXT: 1/2TABL AT 9AM; 1/2 AT 1PM AND 1 BEDTIME, START DAT...
     Route: 065
  7. BUPRENORPHINE [Concomitant]
     Active Substance: BUPRENORPHINE
     Indication: Product used for unknown indication
     Dosage: FREQUENCY TEXT: 1/4 - 2 TIMES A WEEK, FORM STRENGTH: 35 MICROGRAM?START DATE TEXT: BEFORE DUODOPA
     Route: 062
  8. CYANOCOBALAMIN [Concomitant]
     Active Substance: CYANOCOBALAMIN
     Indication: Product used for unknown indication
     Dosage: FORM STRENGTH: 1 MILLIGRAM, FREQUENCY TEXT: AT 1PM, START DATE TEXT: BEFORE DUODOPA
  9. DOMPERIDONE [Concomitant]
     Active Substance: DOMPERIDONE
     Indication: Product used for unknown indication
     Dosage: TIME INTERVAL: 0.33333333 DAYS: FORM STRENGTH: 10 MILLIGRAM, START DATE TEXT: BEFORE DUODOPA
  10. ESCITALOPRAM [Concomitant]
     Active Substance: ESCITALOPRAM OXALATE
     Indication: Product used for unknown indication
     Dosage: FORM STRENGTH: 10 MILLIGRAM, FREQUENCY TEXT: AT 9AM, START DATE TEXT: BEFORE DUODOPA
  11. OMEPRAZOLE [Concomitant]
     Active Substance: OMEPRAZOLE
     Indication: Product used for unknown indication
     Dosage: FORM STRENGTH: 20 MILLIGRAM, FREQUENCY TEXT: AT FASTING, START DATE TEXT: BEFORE DUODOPA
  12. QUETIAPINE [Concomitant]
     Active Substance: QUETIAPINE
     Indication: Product used for unknown indication
     Dosage: FORM STRENGTH: 100 MILLIGRAM, FREQUENCY TEXT: AT BEDTIME, START DATE TEXT: BEFORE DUODOPA
  13. RIVASTIGMINE [Concomitant]
     Active Substance: RIVASTIGMINE
     Indication: Product used for unknown indication
     Dosage: FORM STRENGTH: 9.5 MILLIGRAM, FREQUENCY TEXT: AT 9AM, START DATE TEXT: BEFORE DUODOPA
     Route: 062
  14. ROSUVASTATIN [Concomitant]
     Active Substance: ROSUVASTATIN
     Indication: Product used for unknown indication
     Dosage: FORM STRENGTH: 10 MILLIGRAM, FREQUENCY TEXT: AT BEDTIME, START DATE TEXT: BEFORE DUODOPA
  15. FOLIC ACID [Concomitant]
     Active Substance: FOLIC ACID
     Indication: Product used for unknown indication
     Dosage: 1 TABLET?FREQUENCY TEXT: AT LUNCH?START DATE TEXT: BEFORE DUODOPA
  16. DUTASTERIDE\TAMSULOSIN HYDROCHLORIDE [Concomitant]
     Active Substance: DUTASTERIDE\TAMSULOSIN HYDROCHLORIDE
     Indication: Product used for unknown indication
     Dosage: 0.5 MG + 0.4 MG, FREQUENCY TEXT: AT BEDTIME, START DATE TEXT: BEFORE DUODOPA

REACTIONS (9)
  - Death [Fatal]
  - Pneumonia aspiration [Recovered/Resolved]
  - Joint range of motion decreased [Unknown]
  - Bedridden [Unknown]
  - Dystonia [Unknown]
  - Dystonia [Unknown]
  - Loss of personal independence in daily activities [Unknown]
  - Joint ankylosis [Unknown]
  - Hand deformity [Unknown]

NARRATIVE: CASE EVENT DATE: 20220801
